FAERS Safety Report 7230851-X (Version None)
Quarter: 2011Q1

REPORT INFORMATION
  Report Type: 
  Country: None (occurrence: None)
  Receive Date: 20110118
  Receipt Date: 20110112
  Transmission Date: 20110831
  Serious: Yes (Death)
  Sender: FDA-Public Use
  Company Number: FR-ROCHE-629396

PATIENT
  Sex: Male
  Weight: 64 kg

DRUGS (11)
  1. EPOETIN BETA [Suspect]
     Dosage: DATE OF LAST DOSE PRIOR TO SAE: 06 APRIL 2009.
     Route: 058
     Dates: start: 20090115
  2. NEUPOGEN [Concomitant]
     Dates: start: 20090302
  3. RIBAVIRIN [Suspect]
     Route: 065
     Dates: start: 20081007
  4. TRUVADA [Concomitant]
     Dates: start: 20090401
  5. FUZEON [Concomitant]
     Dates: start: 20090406
  6. TARDYFERON [Concomitant]
     Dates: start: 20090317
  7. PEGINTERFERON ALFA-2A [Suspect]
     Route: 065
     Dates: start: 20081007
  8. NORVIR [Concomitant]
     Dates: start: 20070425
  9. LORAMYC [Concomitant]
     Dates: start: 20090401
  10. AVLOCARDYL [Concomitant]
     Dates: start: 20051122
  11. TELZIR [Concomitant]
     Dates: start: 20080111

REACTIONS (1)
  - ENTEROCOCCAL BACTERAEMIA [None]
